FAERS Safety Report 14484143 (Version 1)
Quarter: 2018Q1

REPORT INFORMATION
  Report Type: Report from Study
  Country: CN (occurrence: CN)
  Receive Date: 20180205
  Receipt Date: 20180205
  Transmission Date: 20180509
  Serious: Yes (Other)
  Sender: FDA-Public Use
  Company Number: CN-ROCHE-2062009

PATIENT

DRUGS (3)
  1. PEG-INTERFERON ALFA 2A [Suspect]
     Active Substance: PEGINTERFERON ALFA-2A
     Indication: CHRONIC HEPATITIS C
     Route: 058
  2. PEG-INTERFERON ALFA 2A [Suspect]
     Active Substance: PEGINTERFERON ALFA-2A
     Route: 058
  3. RIBAVIRIN. [Suspect]
     Active Substance: RIBAVIRIN
     Indication: CHRONIC HEPATITIS C
     Dosage: 900-1000MG/D
     Route: 048

REACTIONS (14)
  - Influenza like illness [Unknown]
  - Rash [Recovering/Resolving]
  - Alopecia [Unknown]
  - Delusion [Unknown]
  - Generalised erythema [Unknown]
  - White blood cell count decreased [Unknown]
  - Alanine aminotransferase increased [Recovered/Resolved]
  - Asthenia [Unknown]
  - Nausea [Unknown]
  - Thyroid function test abnormal [Unknown]
  - Neutrophil count decreased [Unknown]
  - Myocardial necrosis marker increased [Recovered/Resolved]
  - Platelet count decreased [Unknown]
  - Hallucination, auditory [Unknown]
